FAERS Safety Report 9566274 (Version 1)
Quarter: 2013Q3

REPORT INFORMATION
  Report Type: Spontaneous
  Country: ES (occurrence: ES)
  Receive Date: 20130930
  Receipt Date: 20130930
  Transmission Date: 20140515
  Serious: Yes (Hospitalization)
  Sender: FDA-Public Use
  Company Number: ES-B.I. PHARMACEUTICALS,INC./RIDGEFIELD-2013-ES-00530ES

PATIENT
  Age: 81 Year
  Sex: Male

DRUGS (6)
  1. MICARDIS [Suspect]
     Indication: HYPERTENSION
     Dosage: 80 MG
     Route: 048
     Dates: start: 2000, end: 20100925
  2. HYDRALAZINE [Suspect]
     Dosage: 75 MG
     Route: 048
     Dates: start: 20100324, end: 20100925
  3. SEGURIL [Suspect]
     Dosage: 120 MG
     Route: 048
     Dates: start: 20100918, end: 20100925
  4. TROMALYT [Suspect]
     Dosage: 150 MG
     Route: 048
     Dates: start: 20060802, end: 20100925
  5. BOI K [Concomitant]
     Dosage: DAILY DOSE: 1 DF
     Route: 048
     Dates: start: 20100113, end: 20100925
  6. DIANBEN [Concomitant]
     Indication: DIABETES MELLITUS
     Dosage: 2.55 G
     Route: 048
     Dates: start: 20060802, end: 20100925

REACTIONS (2)
  - Renal failure acute [Not Recovered/Not Resolved]
  - Drug interaction [Unknown]
